FAERS Safety Report 19188115 (Version 3)
Quarter: 2021Q2

REPORT INFORMATION
  Report Type: Report from Study
  Country: FR (occurrence: FR)
  Receive Date: 20210427
  Receipt Date: 20210618
  Transmission Date: 20210717
  Serious: Yes (Death, Hospitalization, Other)
  Sender: FDA-Public Use
  Company Number: FR-ELI_LILLY_AND_COMPANY-FR202104011240

PATIENT
  Age: 73 Year
  Sex: Female
  Weight: 65 kg

DRUGS (15)
  1. DIFFU?K [Concomitant]
     Active Substance: POTASSIUM CHLORIDE
     Dosage: 600 MG, UNKNOWN
     Route: 065
  2. BRIMONIDINE [Concomitant]
     Active Substance: BRIMONIDINE TARTRATE
  3. ETESEVIMAB. [Suspect]
     Active Substance: ETESEVIMAB
     Indication: COVID-19
     Dosage: 1400 MG, SINGLE
     Route: 042
     Dates: start: 20210409, end: 20210409
  4. VALACICLOVIR [Concomitant]
     Active Substance: VALACYCLOVIR HYDROCHLORIDE
     Dosage: 500 MG, UNKNOWN
     Route: 065
  5. BACTRIM [Concomitant]
     Active Substance: SULFAMETHOXAZOLE\TRIMETHOPRIM
  6. POSACONAZOLE [Concomitant]
     Active Substance: POSACONAZOLE
     Dosage: 100 MG, TID
     Route: 065
  7. ATROPINE. [Concomitant]
     Active Substance: ATROPINE
  8. BAMLANIVIMAB. [Suspect]
     Active Substance: BAMLANIVIMAB
     Indication: COVID-19
     Dosage: 700 MG, SINGLE
     Route: 042
     Dates: start: 20210409, end: 20210409
  9. PANTOPRAZOLE [Concomitant]
     Active Substance: PANTOPRAZOLE
     Dosage: 20 MG, UNKNOWN
     Route: 065
  10. METFORMINE [METFORMIN] [Concomitant]
     Active Substance: METFORMIN HYDROCHLORIDE
     Dosage: 500 MG, UNKNOWN
     Route: 065
  11. INNOHEP [Concomitant]
     Active Substance: TINZAPARIN SODIUM
     Dosage: 10000 U, UNKNOWN
     Route: 065
  12. DORZOLAMIDE [Concomitant]
     Active Substance: DORZOLAMIDE
  13. DEXAFREE [Concomitant]
     Active Substance: DEXAMETHASONE SODIUM PHOSPHATE
  14. NIVESTIM [Concomitant]
     Active Substance: FILGRASTIM
  15. MYDRIATICUM [Concomitant]
     Active Substance: TROPICAMIDE

REACTIONS (8)
  - Lung disorder [Unknown]
  - COVID-19 [Unknown]
  - Haemodynamic instability [Recovered/Resolved]
  - Shock haemorrhagic [Fatal]
  - Respiratory failure [Recovered/Resolved]
  - Arterial haemorrhage [Fatal]
  - Pyrexia [Recovered/Resolved]
  - Hypotension [Recovered/Resolved]

NARRATIVE: CASE EVENT DATE: 20210409
